FAERS Safety Report 23086257 (Version 3)
Quarter: 2023Q4

REPORT INFORMATION
  Report Type: Report from Study
  Country: US (occurrence: US)
  Receive Date: 20231019
  Receipt Date: 20231115
  Transmission Date: 20240109
  Serious: No
  Sender: FDA-Public Use
  Company Number: US-BIOGEN-2023BI01230641

PATIENT
  Age: 84 Year
  Sex: Female
  Weight: 67.4 kg

DRUGS (10)
  1. ADUCANUMAB [Suspect]
     Active Substance: ADUCANUMAB
     Indication: Dementia Alzheimer^s type
     Dosage: TITRATION PERIOD
     Route: 050
     Dates: start: 20230308, end: 20230308
  2. ADUCANUMAB [Suspect]
     Active Substance: ADUCANUMAB
     Dosage: TITRATION PERIOD
     Route: 050
     Dates: start: 20230404, end: 20230404
  3. ADUCANUMAB [Suspect]
     Active Substance: ADUCANUMAB
     Dosage: TITRATION PERIOD
     Route: 050
     Dates: start: 20230502, end: 20230502
  4. ADUCANUMAB [Suspect]
     Active Substance: ADUCANUMAB
     Dosage: TITRATION PERIOD
     Route: 050
     Dates: start: 20230530, end: 20230530
  5. ADUCANUMAB [Suspect]
     Active Substance: ADUCANUMAB
     Dosage: TITRATION PERIOD
     Route: 050
     Dates: start: 20230627, end: 20230627
  6. ADUCANUMAB [Suspect]
     Active Substance: ADUCANUMAB
     Dosage: TITRATION PERIOD
     Route: 050
     Dates: start: 20230725, end: 20230725
  7. ADUCANUMAB [Suspect]
     Active Substance: ADUCANUMAB
     Dosage: MAINTENANCE PERIOD
     Route: 050
     Dates: start: 20230822
  8. AMYVID [Suspect]
     Active Substance: FLORBETAPIR F-18
     Indication: Positron emission tomogram
     Route: 050
     Dates: start: 20230213, end: 20230213
  9. FLORQUINITAU [Suspect]
     Active Substance: FLORQUINITAU
     Indication: Positron emission tomogram
     Route: 050
     Dates: start: 20230223, end: 20230223
  10. CETIRIZINE [Concomitant]
     Active Substance: CETIRIZINE HYDROCHLORIDE
     Route: 050
     Dates: start: 2005

REACTIONS (1)
  - Amyloid related imaging abnormality-oedema/effusion [Recovered/Resolved]

NARRATIVE: CASE EVENT DATE: 20231004
